FAERS Safety Report 19912696 (Version 1)
Quarter: 2021Q4

REPORT INFORMATION
  Report Type: Spontaneous
  Country: US (occurrence: US)
  Receive Date: 20211004
  Receipt Date: 20211004
  Transmission Date: 20220303
  Serious: Yes (Other)
  Sender: FDA-Public Use
  Company Number: None

PATIENT
  Age: 32 Year
  Sex: Female
  Weight: 78.75 kg

DRUGS (1)
  1. LAMOTRIGINE [Suspect]
     Active Substance: LAMOTRIGINE
     Indication: Depression
     Route: 048
     Dates: start: 20201201, end: 20210601

REACTIONS (4)
  - Feeling abnormal [None]
  - Disturbance in attention [None]
  - Crying [None]
  - Confusional state [None]

NARRATIVE: CASE EVENT DATE: 20210401
